FAERS Safety Report 11059610 (Version 1)
Quarter: 2015Q2

REPORT INFORMATION
  Report Type: Spontaneous
  Country: CN (occurrence: CN)
  Receive Date: 20150423
  Receipt Date: 20150423
  Transmission Date: 20150821
  Serious: Yes (Death, Hospitalization)
  Sender: FDA-Public Use
  Company Number: PHHY2015CN048514

PATIENT
  Age: 39 Year
  Sex: Female

DRUGS (5)
  1. DOXORUBICIN [Suspect]
     Active Substance: DOXORUBICIN
     Indication: BUDD-CHIARI SYNDROME
     Route: 065
  2. VINDESINE [Concomitant]
     Active Substance: VINDESINE
     Indication: BUDD-CHIARI SYNDROME
     Dosage: 4 MG, DAY 1
     Route: 065
  3. THEPRUBICINE [Concomitant]
     Active Substance: PIRARUBICIN
     Indication: BUDD-CHIARI SYNDROME
     Dosage: 30 MG, DAYS 6 TO 7
     Route: 065
  4. CYCLOPHOSPHAMIDE. [Suspect]
     Active Substance: CYCLOPHOSPHAMIDE
     Indication: BUDD-CHIARI SYNDROME
     Dosage: 0.4 G, DAYS 1 TO 3
     Route: 065
  5. PREDNISOLONE. [Suspect]
     Active Substance: PREDNISOLONE
     Indication: BUDD-CHIARI SYNDROME
     Dosage: 100 MG, DAYS 1 TO 5
     Route: 065

REACTIONS (6)
  - Gastrointestinal infection [Not Recovered/Not Resolved]
  - Bone marrow failure [Unknown]
  - Pyrexia [Not Recovered/Not Resolved]
  - Agranulocytosis [Not Recovered/Not Resolved]
  - Haemorrhage intracranial [Fatal]
  - Lung infection [Not Recovered/Not Resolved]
